FAERS Safety Report 7043441-9 (Version None)
Quarter: 2010Q4

REPORT INFORMATION
  Report Type: 
  Country: None (occurrence: None)
  Receive Date: 20101013
  Receipt Date: 20100611
  Transmission Date: 20110411
  Serious: No
  Sender: FDA-Public Use
  Company Number: US-BAUSCH-2010BL003186

PATIENT
  Age: 55 Year
  Sex: Female

DRUGS (1)
  1. NEOMYCIN SULFATE-POLYMYXIN B SULFATE-HYDROCORTISONE [Suspect]
     Route: 047
     Dates: start: 20100611, end: 20100611

REACTIONS (6)
  - EXPIRED DRUG ADMINISTERED [None]
  - EYE IRRITATION [None]
  - EYE PRURITUS [None]
  - INCORRECT ROUTE OF DRUG ADMINISTRATION [None]
  - OCULAR HYPERAEMIA [None]
  - WRONG DRUG ADMINISTERED [None]
